FAERS Safety Report 16790109 (Version 1)
Quarter: 2019Q3

REPORT INFORMATION
  Report Type: Spontaneous
  Country: US (occurrence: US)
  Receive Date: 20190910
  Receipt Date: 20190910
  Transmission Date: 20191005
  Serious: No
  Sender: FDA-Public Use
  Company Number: US-SA-2019SA249060

PATIENT
  Age: 33 Year
  Sex: Male

DRUGS (1)
  1. PRIFTIN [Suspect]
     Active Substance: RIFAPENTINE
     Dosage: 6 DF, QW

REACTIONS (1)
  - Product storage error [Unknown]
